FAERS Safety Report 12148062 (Version 2)
Quarter: 2019Q1

REPORT INFORMATION
  Report Type: Spontaneous
  Country: US (occurrence: US)
  Receive Date: 20160304
  Receipt Date: 20190129
  Transmission Date: 20190417
  Serious: No
  Sender: FDA-Public Use
  Company Number: US-PFIZER INC-2016102746

PATIENT
  Age: 93 Year
  Sex: Male

DRUGS (6)
  1. FELDENE [Suspect]
     Active Substance: PIROXICAM
     Dosage: UNK
  2. INDOCIN [Suspect]
     Active Substance: INDOMETHACIN
     Dosage: UNK
  3. GABAPENTIN. [Suspect]
     Active Substance: GABAPENTIN
     Dosage: UNK
  4. PRIMIDONE. [Suspect]
     Active Substance: PRIMIDONE
     Dosage: UNK
  5. FOSAMAX [Suspect]
     Active Substance: ALENDRONATE SODIUM
     Dosage: UNK
  6. KEFLEX [Suspect]
     Active Substance: CEPHALEXIN
     Dosage: UNK

REACTIONS (1)
  - Drug hypersensitivity [Unknown]
